FAERS Safety Report 10461768 (Version 2)
Quarter: 2014Q3

REPORT INFORMATION
  Report Type: Spontaneous
  Country: US (occurrence: US)
  Receive Date: 20140918
  Receipt Date: 20140918
  Transmission Date: 20150326
  Serious: Yes (Hospitalization, Other)
  Sender: FDA-Public Use
  Company Number: US-PFIZER INC-9600593

PATIENT
  Age: 27 Year
  Sex: Female

DRUGS (10)
  1. ROXANOL [Concomitant]
     Active Substance: MORPHINE SULFATE
     Dates: start: 19950301, end: 19950412
  2. ACETAMINOPHEN. [Concomitant]
     Active Substance: ACETAMINOPHEN
     Route: 048
  3. TRAZODONE [Concomitant]
     Active Substance: TRAZODONE HYDROCHLORIDE
     Route: 048
  4. FLUCONAZOLE. [Suspect]
     Active Substance: FLUCONAZOLE
     Dosage: DAILY
     Route: 065
     Dates: start: 199505
  5. COLACE [Concomitant]
     Active Substance: DOCUSATE SODIUM
  6. FLUCONAZOLE. [Suspect]
     Active Substance: FLUCONAZOLE
     Dosage: DAILY
     Route: 065
     Dates: start: 199501, end: 199502
  7. FLUCONAZOLE. [Suspect]
     Active Substance: FLUCONAZOLE
     Indication: MENINGITIS COCCIDIOIDES
     Dosage: DAILY
     Route: 065
     Dates: start: 199312, end: 199501
  8. AMPHOTERICIN B. [Concomitant]
     Active Substance: AMPHOTERICIN B
     Route: 037
     Dates: start: 199309
  9. IBUPROFEN. [Concomitant]
     Active Substance: IBUPROFEN
     Route: 048
  10. PAXIL [Concomitant]
     Active Substance: PAROXETINE HYDROCHLORIDE
     Route: 048

REACTIONS (10)
  - Premature baby [Unknown]
  - Drug administration error [Unknown]
  - Vomiting [Unknown]
  - Device related infection [Unknown]
  - Pain [Unknown]
  - Amniotic cavity infection [Unknown]
  - Intentional overdose [Unknown]
  - Caesarean section [Unknown]
  - Meningitis [Unknown]
  - Nausea [Unknown]

NARRATIVE: CASE EVENT DATE: 199501
